FAERS Safety Report 4438594-2 (Version None)
Quarter: 2004Q3

REPORT INFORMATION
  Report Type: 
  Country: None (occurrence: None)
  Receive Date: 20040728
  Receipt Date: 20040317
  Transmission Date: 20050211
  Serious: No
  Sender: FDA-Public Use
  Company Number: USA040362354

PATIENT
  Age: 27 Year
  Sex: Female

DRUGS (2)
  1. STRATTERA [Suspect]
     Dosage: 40 MG/ 2 DAY
     Dates: start: 20031103
  2. ZOLOFT [Concomitant]

REACTIONS (1)
  - MEMORY IMPAIRMENT [None]
